FAERS Safety Report 16643031 (Version 7)
Quarter: 2020Q1

REPORT INFORMATION
  Report Type: Report from Study
  Country: JP (occurrence: JP)
  Receive Date: 20190729
  Receipt Date: 20200114
  Transmission Date: 20200409
  Serious: Yes (Death, Hospitalization)
  Sender: FDA-Public Use
  Company Number: JP-GILEAD-2019-0419720

PATIENT
  Age: 83 Year
  Sex: Female
  Weight: 49 kg

DRUGS (16)
  1. AMINOLEBAN [Concomitant]
     Active Substance: AMINO ACIDS, SOURCE UNSPECIFIED
     Indication: HEPATIC CIRRHOSIS
     Dosage: UNK
     Route: 048
     Dates: start: 20111219, end: 20190717
  2. ONON [Concomitant]
     Active Substance: PRANLUKAST
     Indication: DISEASE COMPLICATION
     Dosage: UNK
     Route: 048
     Dates: start: 20180410, end: 20190718
  3. LIVACT [ISOLEUCINE;LEUCINE;VALINE] [Concomitant]
     Indication: HEPATIC CIRRHOSIS
     Dosage: UNK
     Route: 048
     Dates: start: 20090925, end: 20190717
  4. SOFOSBUVIR W/VELPATASVIR [Suspect]
     Active Substance: SOFOSBUVIR\VELPATASVIR
     Indication: HEPATIC CIRRHOSIS
     Dosage: 1 DOSAGE FORM, QD
     Route: 048
     Dates: end: 20190423
  5. AMLODIPINE [Concomitant]
     Active Substance: AMLODIPINE BESYLATE
     Indication: DISEASE COMPLICATION
     Dosage: UNK
     Route: 048
     Dates: start: 20140728, end: 20190506
  6. URSODEOXYCHOLIC ACID [Concomitant]
     Active Substance: URSODIOL
     Indication: HEPATITIS C
     Dosage: UNK
     Route: 048
     Dates: end: 20190718
  7. SPIRONOLACTONE. [Concomitant]
     Active Substance: SPIRONOLACTONE
     Indication: HEPATIC CIRRHOSIS
     Dosage: UNK
     Route: 048
     Dates: start: 20190517, end: 20190705
  8. SOFOSBUVIR W/VELPATASVIR [Suspect]
     Active Substance: SOFOSBUVIR\VELPATASVIR
     Indication: HEPATITIS C
     Dosage: 1 DOSAGE FORM, QD
     Route: 048
     Dates: start: 20190313
  9. BISOPROLOL FUMARATE. [Concomitant]
     Active Substance: BISOPROLOL FUMARATE
     Indication: DISEASE COMPLICATION
     Dosage: UNK
     Route: 048
     Dates: start: 20140522, end: 201905
  10. GLAKAY [Concomitant]
     Active Substance: MENATETRENONE
     Indication: DISEASE COMPLICATION
     Dosage: UNK
     Route: 048
     Dates: start: 20151222, end: 20190718
  11. FEBURIC [Concomitant]
     Active Substance: FEBUXOSTAT
     Indication: PROPHYLAXIS
     Dosage: UNK
     Route: 048
     Dates: start: 20190517, end: 20190717
  12. TEPRENONE [Concomitant]
     Active Substance: TEPRENONE
     Indication: DISEASE COMPLICATION
     Dosage: UNK
     Route: 048
     Dates: start: 20151027, end: 20190717
  13. PORTOLAC [Concomitant]
     Active Substance: LACTITOL
     Indication: HEPATIC CIRRHOSIS
     Dosage: UNK
     Route: 048
     Dates: start: 20130430, end: 20190718
  14. NEXIUM [Concomitant]
     Active Substance: ESOMEPRAZOLE MAGNESIUM
     Indication: DISEASE COMPLICATION
     Dosage: UNK
     Route: 048
     Dates: start: 20130826, end: 20190718
  15. AZILVA [Concomitant]
     Active Substance: AZILSARTAN KAMEDOXOMIL
     Indication: DISEASE COMPLICATION
     Dosage: UNK
     Route: 048
     Dates: start: 20131116, end: 20190506
  16. RIFXIMA [Concomitant]
     Active Substance: RIFAXIMIN
     Indication: HEPATIC CIRRHOSIS
     Dosage: UNK
     Route: 048
     Dates: start: 20190521, end: 20190717

REACTIONS (2)
  - Kidney congestion [Recovered/Resolved]
  - Hepatic failure [Fatal]

NARRATIVE: CASE EVENT DATE: 20190423
